FAERS Safety Report 7083735-4 (Version None)
Quarter: 2010Q4

REPORT INFORMATION
  Report Type: 
  Country: None (occurrence: None)
  Receive Date: 20101104
  Receipt Date: 20101026
  Transmission Date: 20110411
  Serious: Yes (Hospitalization)
  Sender: FDA-Public Use
  Company Number: IE-BAXTER-2010BH022400

PATIENT
  Age: 36 Year
  Sex: Male
  Weight: 80 kg

DRUGS (7)
  1. GAMMAGARD LIQUID [Suspect]
     Indication: PROPHYLAXIS AGAINST TRANSPLANT REJECTION
     Route: 042
     Dates: start: 20100826, end: 20100826
  2. GAMMAGARD LIQUID [Suspect]
     Route: 042
     Dates: start: 20100825, end: 20100825
  3. PREDNISOLONE [Concomitant]
     Indication: HEART TRANSPLANT
     Route: 048
  4. CELLCEPT [Concomitant]
     Indication: HEART TRANSPLANT
     Route: 048
  5. SEPTRIN [Concomitant]
     Indication: HEART TRANSPLANT
     Route: 048
  6. ESOMEPRAZOLE [Concomitant]
     Indication: HEART TRANSPLANT
     Route: 048
  7. AMLODIPINE [Concomitant]
     Indication: HEART TRANSPLANT
     Route: 048

REACTIONS (6)
  - BACK PAIN [None]
  - BLOOD CREATININE INCREASED [None]
  - HEADACHE [None]
  - MALAISE [None]
  - NAUSEA [None]
  - PYREXIA [None]
